FAERS Safety Report 24663671 (Version 2)
Quarter: 2024Q4

REPORT INFORMATION
  Report Type: Spontaneous
  Country: CN (occurrence: CN)
  Receive Date: 20241126
  Receipt Date: 20241129
  Transmission Date: 20250115
  Serious: Yes (Hospitalization, Other)
  Sender: Kenvue
  Company Number: CN-KENVUE-20241106271

PATIENT

DRUGS (2)
  1. TYLENOL FOR CHILDREN PLUS ADULTS [Suspect]
     Active Substance: ACETAMINOPHEN
     Indication: Pyrexia
     Dosage: 7 MILLILITER, ONCE A DAY
     Route: 048
     Dates: start: 20241017, end: 20241018
  2. CHILDRENS MOTRIN [Suspect]
     Active Substance: IBUPROFEN
     Indication: Pyrexia
     Dosage: UNK
     Route: 048
     Dates: start: 20241017

REACTIONS (9)
  - Incorrect dose administered [Unknown]
  - Mental fatigue [Unknown]
  - Decreased appetite [Unknown]
  - Poor quality sleep [Unknown]
  - Urine output decreased [Unknown]
  - Inappropriate schedule of product administration [Unknown]
  - Product administration error [Unknown]
  - Hepatotoxicity [Recovered/Resolved]
  - Rash pruritic [Recovering/Resolving]

NARRATIVE: CASE EVENT DATE: 20241017
